FAERS Safety Report 21854427 (Version 1)
Quarter: 2023Q1

REPORT INFORMATION
  Report Type: Spontaneous
  Country: US (occurrence: US)
  Receive Date: 20230112
  Receipt Date: 20230112
  Transmission Date: 20230417
  Serious: Yes (Death, Other)
  Sender: FDA-Public Use
  Company Number: US-SPECGX-T202300439

PATIENT

DRUGS (1)
  1. METHADONE [Suspect]
     Active Substance: METHADONE HYDROCHLORIDE
     Indication: Drug use disorder
     Dosage: 70 MILLIGRAM, QD
     Route: 065

REACTIONS (5)
  - Death [Fatal]
  - Post procedural complication [Fatal]
  - Drug use disorder [Fatal]
  - Electrocardiogram QT prolonged [Unknown]
  - Drug dependence [Unknown]
